FAERS Safety Report 13163211 (Version 1)
Quarter: 2017Q1

REPORT INFORMATION
  Report Type: Spontaneous
  Country: US (occurrence: US)
  Receive Date: 20170129
  Receipt Date: 20170129
  Transmission Date: 20170428
  Serious: Yes (Disabling)
  Sender: FDA-Public Use
  Company Number: None

PATIENT
  Age: 25 Year
  Sex: Female
  Weight: 65.25 kg

DRUGS (3)
  1. VALACYCLOVIR [Concomitant]
     Active Substance: VALACYCLOVIR HYDROCHLORIDE
  2. SPIRONOLACT [Concomitant]
  3. NUVARING [Suspect]
     Active Substance: ETHINYL ESTRADIOL\ETONOGESTREL
     Indication: CONTRACEPTION
     Dosage: QUANTITY:1 1;OTHER FREQUENCY:CONSTANTLY;?
     Route: 067
     Dates: start: 20170112

REACTIONS (6)
  - Vulvovaginal swelling [None]
  - Genital pain [None]
  - Muscle spasms [None]
  - Vulvovaginal burning sensation [None]
  - Dysuria [None]
  - Pain [None]

NARRATIVE: CASE EVENT DATE: 20170128
